FAERS Safety Report 19195405 (Version 2)
Quarter: 2021Q4

REPORT INFORMATION
  Report Type: Spontaneous
  Country: CA (occurrence: CA)
  Receive Date: 20210429
  Receipt Date: 20211208
  Transmission Date: 20220303
  Serious: Yes (Death, Hospitalization, Disabling, Other)
  Sender: FDA-Public Use
  Company Number: CA-ACCORD-224076

PATIENT
  Age: 65 Year
  Sex: Male
  Weight: 88.60 kg

DRUGS (6)
  1. TEMOZOLOMIDE [Suspect]
     Active Substance: TEMOZOLOMIDE
     Indication: Glioblastoma
     Route: 048
     Dates: start: 20201215, end: 20210112
  2. DILANTIN [Concomitant]
     Active Substance: PHENYTOIN
     Indication: Seizure prophylaxis
     Route: 048
     Dates: start: 20201102
  3. DAPSONE [Concomitant]
     Active Substance: DAPSONE
     Indication: Pneumocystis jirovecii pneumonia
     Route: 048
     Dates: start: 20201215
  4. PANTOPRAZOLE [Concomitant]
     Active Substance: PANTOPRAZOLE
     Indication: Gastrooesophageal reflux disease
     Route: 048
     Dates: start: 20201102
  5. DEXAMETHASONE [Concomitant]
     Active Substance: DEXAMETHASONE
     Indication: Oligodendroglioma
     Dosage: TAPERING DOSE
     Route: 048
     Dates: start: 20201022
  6. PANTOPRAZOLE [Concomitant]
     Active Substance: PANTOPRAZOLE
     Route: 042

REACTIONS (5)
  - Thrombocytopenia [Fatal]
  - Necrotising fasciitis [Fatal]
  - Neutrophil count decreased [Fatal]
  - Neutropenia [Fatal]
  - Sepsis [Fatal]

NARRATIVE: CASE EVENT DATE: 20210111
